FAERS Safety Report 8449330-7 (Version None)
Quarter: 2012Q2

REPORT INFORMATION
  Report Type: 
  Country: None (occurrence: None)
  Receive Date: 20120619
  Receipt Date: 20120613
  Transmission Date: 20120825
  Serious: Yes (Hospitalization, Other)
  Sender: FDA-Public Use
  Company Number: SE-PFIZER INC-2012142139

PATIENT
  Age: 38 Year
  Sex: Female

DRUGS (1)
  1. LYRICA [Suspect]
     Indication: ANXIETY
     Dosage: 6.3 G, 1X/DAY
     Route: 048
     Dates: start: 20120407, end: 20120407

REACTIONS (5)
  - DRUG ABUSE [None]
  - SUICIDE ATTEMPT [None]
  - DIZZINESS [None]
  - HEADACHE [None]
  - DIPLOPIA [None]
